FAERS Safety Report 12242967 (Version 3)
Quarter: 2016Q2

REPORT INFORMATION
  Report Type: Spontaneous
  Country: IT (occurrence: IT)
  Receive Date: 20160406
  Receipt Date: 20160421
  Transmission Date: 20160815
  Serious: Yes (Life-Threatening, Hospitalization, Other)
  Sender: FDA-Public Use
  Company Number: IT-ELI_LILLY_AND_COMPANY-IT201604000179

PATIENT
  Age: 29 Year
  Sex: Female

DRUGS (3)
  1. ZYPREXA [Suspect]
     Active Substance: OLANZAPINE
     Indication: DECREASED APPETITE
     Dosage: 2.5 MG, QD
     Route: 048
     Dates: start: 20160322, end: 20160325
  2. RISPERIDONE. [Suspect]
     Active Substance: RISPERIDONE
     Indication: DECREASED APPETITE
     Dosage: 1 MG, UNKNOWN
     Route: 065
     Dates: start: 20160101, end: 20160322
  3. ZYPREXA [Suspect]
     Active Substance: OLANZAPINE
     Indication: PSYCHOTIC DISORDER
     Dosage: 5 MG, QD
     Route: 048
     Dates: start: 20160322, end: 20160330

REACTIONS (8)
  - Neutropenia [Recovered/Resolved]
  - White blood cell count decreased [Recovered/Resolved]
  - Sensitisation [Unknown]
  - Haemorrhoidal haemorrhage [Unknown]
  - Pyrexia [Unknown]
  - Anaemia [Unknown]
  - Thrombocytopenia [Unknown]
  - Off label use [Unknown]

NARRATIVE: CASE EVENT DATE: 20160324
